FAERS Safety Report 14628685 (Version 1)
Quarter: 2018Q1

REPORT INFORMATION
  Report Type: Report from Study
  Country: None (occurrence: US)
  Receive Date: 20180313
  Receipt Date: 20180313
  Transmission Date: 20180509
  Serious: Yes (Other)
  Sender: FDA-Public Use
  Company Number: US-ABBVIE-17K-163-2097171-00

PATIENT
  Sex: Female

DRUGS (1)
  1. HUMIRA [Suspect]
     Active Substance: ADALIMUMAB
     Indication: CROHN^S DISEASE
     Route: 058

REACTIONS (11)
  - Constipation [Recovered/Resolved]
  - Headache [Unknown]
  - Large intestine polyp [Not Recovered/Not Resolved]
  - Constipation [Recovered/Resolved]
  - Gastrointestinal inflammation [Unknown]
  - Migraine [Recovered/Resolved]
  - Diarrhoea [Unknown]
  - Therapeutic response shortened [Unknown]
  - Bowel movement irregularity [Not Recovered/Not Resolved]
  - Haematochezia [Not Recovered/Not Resolved]
  - Fibromyalgia [Unknown]

NARRATIVE: CASE EVENT DATE: 2018
